FAERS Safety Report 9922462 (Version 1)
Quarter: 2014Q1

REPORT INFORMATION
  Report Type: Spontaneous
  Country: US (occurrence: US)
  Receive Date: 20140225
  Receipt Date: 20140225
  Transmission Date: 20141002
  Serious: No
  Sender: FDA-Public Use
  Company Number: US-MYLANLABS-2013S1005455

PATIENT
  Age: 71 Year
  Sex: Male

DRUGS (2)
  1. ATENOLOL TABLETS, USP [Suspect]
     Indication: ATRIAL FIBRILLATION
     Route: 048
     Dates: start: 2006
  2. ATENOLOL TABLETS, USP [Suspect]
     Indication: OFF LABEL USE
     Route: 048
     Dates: start: 2006

REACTIONS (1)
  - Drug hypersensitivity [Recovered/Resolved]
